FAERS Safety Report 18457025 (Version 5)
Quarter: 2021Q1

REPORT INFORMATION
  Report Type: Report from Study
  Country: US (occurrence: US)
  Receive Date: 20201103
  Receipt Date: 20210125
  Transmission Date: 20210419
  Serious: Yes (Hospitalization, Other)
  Sender: FDA-Public Use
  Company Number: US-BAYER-2020-230847

PATIENT
  Age: 80 Year
  Sex: Male

DRUGS (3)
  1. STIVARGA [Suspect]
     Active Substance: REGORAFENIB
     Indication: GASTROINTESTINAL STROMAL TUMOUR
     Dosage: 120 MG DAILY FOR 21 DAYS OF 28 DAY CYCLE
     Route: 048
     Dates: start: 20201022, end: 20201023
  2. STIVARGA [Suspect]
     Active Substance: REGORAFENIB
     Indication: COLORECTAL CANCER
     Dosage: 120 MG DAILY FOR 21 DAYS OF 28 DAY CYCLE
     Route: 048
     Dates: start: 20201025, end: 2020
  3. STIVARGA [Suspect]
     Active Substance: REGORAFENIB
     Indication: GASTROINTESTINAL STROMAL TUMOUR
     Dosage: DAILY DOSE 80 MG
     Route: 048
     Dates: start: 20201125, end: 20201216

REACTIONS (18)
  - Dysphagia [Not Recovered/Not Resolved]
  - Food refusal [Unknown]
  - Peroneal nerve palsy [Unknown]
  - Tinnitus [Not Recovered/Not Resolved]
  - Off label use [None]
  - Blister [Not Recovered/Not Resolved]
  - Headache [Not Recovered/Not Resolved]
  - Skin discolouration [Not Recovered/Not Resolved]
  - Oesophageal operation [None]
  - Abdominal pain [Unknown]
  - Blister [Unknown]
  - Decreased activity [None]
  - Dysphagia [Unknown]
  - Pain in extremity [Not Recovered/Not Resolved]
  - Weight decreased [Unknown]
  - Dysphonia [None]
  - Dry mouth [None]
  - Blood pressure systolic increased [Unknown]

NARRATIVE: CASE EVENT DATE: 202010
